FAERS Safety Report 8804985 (Version 2)
Quarter: 2012Q4

REPORT INFORMATION
  Report Type: Report from Study
  Country: GB (occurrence: GB)
  Receive Date: 20120924
  Receipt Date: 20121015
  Transmission Date: 20130627
  Serious: Yes (Other)
  Sender: FDA-Public Use
  Company Number: GB-ROCHE-1127084

PATIENT
  Age: 57 Year
  Sex: Male
  Weight: 84.58 kg

DRUGS (10)
  1. PEG-INTERFERON ALFA 2A [Suspect]
     Indication: HEPATITIS C
     Dosage: Date of last dose prior to SAE: 31/Jul/2012
     Route: 065
     Dates: start: 20120124
  2. RIBAVIRIN [Suspect]
     Indication: HEPATITIS C
     Dosage: Date of last dose prior to SAE: 05/Aug/2012
     Route: 048
     Dates: start: 20120117, end: 20120216
  3. RIBAVIRIN [Suspect]
     Route: 048
     Dates: start: 20120217, end: 20120418
  4. RIBAVIRIN [Suspect]
     Route: 048
     Dates: start: 20120419, end: 20120510
  5. RIBAVIRIN [Suspect]
     Route: 048
     Dates: start: 20120511, end: 20120718
  6. RIBAVIRIN [Suspect]
     Route: 048
     Dates: start: 20120723
  7. ALISPORIVIR [Suspect]
     Indication: HEPATITIS C
     Dosage: Unknown
     Route: 065
  8. OMEPRAZOLE [Concomitant]
     Route: 065
     Dates: start: 19991015
  9. ACETAMINOPHEN/HYDROCODONE [Concomitant]
     Route: 065
     Dates: start: 20040101
  10. VITAMIN B12 [Concomitant]
     Route: 065
     Dates: start: 20110901

REACTIONS (2)
  - Hepatocellular carcinoma [Not Recovered/Not Resolved]
  - Hepatic cirrhosis [None]
